FAERS Safety Report 9731602 (Version 3)
Quarter: 2016Q1

REPORT INFORMATION
  Report Type: Report from Study
  Country: BR (occurrence: BR)
  Receive Date: 20131205
  Receipt Date: 20160208
  Transmission Date: 20160526
  Serious: Yes (Hospitalization)
  Sender: FDA-Public Use
  Company Number: BR-ROCHE-1310944

PATIENT
  Sex: Female
  Weight: 65 kg

DRUGS (6)
  1. ACTEMRA [Suspect]
     Active Substance: TOCILIZUMAB
     Indication: RHEUMATOID ARTHRITIS
     Route: 042
     Dates: start: 20120303
  2. HYDROCHLOROTHIAZIDE. [Concomitant]
     Active Substance: HYDROCHLOROTHIAZIDE
  3. RANITIDINE [Concomitant]
     Active Substance: RANITIDINE\RANITIDINE HYDROCHLORIDE
  4. LOSARTAN. [Concomitant]
     Active Substance: LOSARTAN
  5. PRELONE [Concomitant]
     Active Substance: PREDNISOLONE
  6. CODEINE [Concomitant]
     Active Substance: CODEINE

REACTIONS (4)
  - Neuritis [Unknown]
  - Gait disturbance [Unknown]
  - Joint lock [Unknown]
  - Pneumonia [Not Recovered/Not Resolved]
